FAERS Safety Report 10815385 (Version 1)
Quarter: 2015Q1

REPORT INFORMATION
  Report Type: Report from Study
  Country: US (occurrence: US)
  Receive Date: 20150218
  Receipt Date: 20150218
  Transmission Date: 20150721
  Serious: No
  Sender: FDA-Public Use
  Company Number: US-009507513-1502USA006355

PATIENT
  Age: 24 Year
  Sex: Female
  Weight: 113.38 kg

DRUGS (1)
  1. IMPLANON [Suspect]
     Active Substance: ETONOGESTREL
     Dosage: UNK
     Route: 059
     Dates: start: 20120214, end: 20150210

REACTIONS (1)
  - Medical device removal [Recovered/Resolved]

NARRATIVE: CASE EVENT DATE: 20150210
